FAERS Safety Report 19005574 (Version 1)
Quarter: 2021Q1

REPORT INFORMATION
  Report Type: Spontaneous
  Country: FR (occurrence: FR)
  Receive Date: 20210313
  Receipt Date: 20210313
  Transmission Date: 20210420
  Serious: Yes (Hospitalization, Other)
  Sender: FDA-Public Use
  Company Number: FR-BRISTOL-MYERS SQUIBB COMPANY-BMS-2021-024009

PATIENT
  Age: 59 Year
  Sex: Female
  Weight: 77 kg

DRUGS (16)
  1. CHOLECALCIFEROL [Concomitant]
     Active Substance: CHOLECALCIFEROL
     Dosage: 270 MILLIGRAM, QD
     Route: 048
  2. CACIT VITAMINE D3 [Concomitant]
     Active Substance: CALCIUM CARBONATE\CHOLECALCIFEROL
     Dosage: 2 DOSAGE FORM, QD
     Route: 048
  3. ABATACEPT [Suspect]
     Active Substance: ABATACEPT
     Indication: SCLERODERMA
     Dosage: 750 MILLIGRAM, QMO
     Route: 041
     Dates: start: 202011
  4. DULOXETINE. [Concomitant]
     Active Substance: DULOXETINE
     Indication: PRODUCT USED FOR UNKNOWN INDICATION
     Dosage: 270 MILLIGRAM, QD
     Route: 048
  5. PREDNISONE. [Concomitant]
     Active Substance: PREDNISONE
     Indication: PRODUCT USED FOR UNKNOWN INDICATION
     Dosage: 270 MILLIGRAM, QD
     Route: 048
  6. CHOLECALCIFEROL [Concomitant]
     Active Substance: CHOLECALCIFEROL
     Indication: PRODUCT USED FOR UNKNOWN INDICATION
     Dosage: 2 DOSAGE FORM, QD
     Route: 048
  7. PREDNISONE. [Concomitant]
     Active Substance: PREDNISONE
     Dosage: 15 MILLIGRAM, QD
     Route: 048
  8. CACIT VITAMINE D3 [Concomitant]
     Active Substance: CALCIUM CARBONATE\CHOLECALCIFEROL
     Indication: PRODUCT USED FOR UNKNOWN INDICATION
     Dosage: 270 MILLIGRAM, QD
     Route: 048
  9. OGASTORO [Concomitant]
     Active Substance: LANSOPRAZOLE
     Indication: PRODUCT USED FOR UNKNOWN INDICATION
     Dosage: 30 MILLIGRAM, QD
     Route: 048
  10. CHOLECALCIFEROL [Concomitant]
     Active Substance: CHOLECALCIFEROL
     Dosage: 80000 INTERNATIONAL UNIT
     Route: 048
  11. DILTIAZEM. [Concomitant]
     Active Substance: DILTIAZEM
     Indication: PRODUCT USED FOR UNKNOWN INDICATION
     Dosage: 270 MILLIGRAM, QD
     Route: 048
  12. DILTIAZEM. [Concomitant]
     Active Substance: DILTIAZEM
     Dosage: 90 MILLIGRAM, QD
     Route: 048
  13. DULOXETINE. [Concomitant]
     Active Substance: DULOXETINE
     Dosage: 60 MILLIGRAM, QD
     Route: 048
  14. BACTRIM [Suspect]
     Active Substance: SULFAMETHOXAZOLE\TRIMETHOPRIM
     Indication: PNEUMOCYSTIS TEST POSITIVE
     Dosage: 6 DOSAGE FORM, QD
     Route: 048
     Dates: start: 20210217, end: 20210223
  15. CACIT VITAMINE D3 [Concomitant]
     Active Substance: CALCIUM CARBONATE\CHOLECALCIFEROL
     Dosage: 2 DOSAGE FORM, QD
     Route: 048
  16. OGASTORO [Concomitant]
     Active Substance: LANSOPRAZOLE
     Dosage: 270 MILLIGRAM, QD
     Route: 048

REACTIONS (2)
  - Pancreatitis acute [Recovering/Resolving]
  - Intentional product use issue [Unknown]

NARRATIVE: CASE EVENT DATE: 20210222
